FAERS Safety Report 4605586-X (Version None)
Quarter: 2005Q1

REPORT INFORMATION
  Report Type: 
  Country: None (occurrence: None)
  Receive Date: 20050214
  Receipt Date: 20041109
  Transmission Date: 20050727
  Serious: No
  Sender: FDA-Public Use
  Company Number: USA041183683

PATIENT
  Age: 67 Year
  Sex: Male

DRUGS (5)
  1. CIALIS [Suspect]
     Indication: ERECTILE DYSFUNCTION
     Dosage: 10 MG
     Dates: start: 20041106
  2. CELEBREX [Concomitant]
  3. ALLEGRA [Concomitant]
  4. TRICOR [Concomitant]
  5. PREVACID [Concomitant]

REACTIONS (2)
  - CHEST EXPANSION DECREASED [None]
  - MUSCLE SPASMS [None]
